FAERS Safety Report 24334176 (Version 3)
Quarter: 2024Q4

REPORT INFORMATION
  Report Type: Spontaneous
  Country: US (occurrence: US)
  Receive Date: 20240918
  Receipt Date: 20241111
  Transmission Date: 20250115
  Serious: Yes (Hospitalization)
  Sender: JOHNSON AND JOHNSON
  Company Number: US-JNJFOC-20240924423

PATIENT
  Age: 55 Year
  Sex: Male
  Weight: 122 kg

DRUGS (21)
  1. OPSUMIT [Suspect]
     Active Substance: MACITENTAN
     Indication: Product used for unknown indication
     Dosage: THERAPY START DATE 6 OR 7-2024
     Route: 048
     Dates: start: 2024, end: 202408
  2. REMODULIN [Suspect]
     Active Substance: TREPROSTINIL
     Indication: Pulmonary arterial hypertension
     Dosage: (SELF FILL WITH 1.7ML PER CASSETTE; PUMP RATE 17MCL PER HOUR)
     Route: 058
     Dates: start: 20240717
  3. REMODULIN [Suspect]
     Active Substance: TREPROSTINIL
     Dosage: SELF-FILL CASSETTE WITH 3 ML; AT A RATE OF 56 MCL PER HOUR
     Route: 058
     Dates: start: 2024
  4. SPIRONOLACTONE [Concomitant]
     Active Substance: SPIRONOLACTONE
  5. FOLIC ACID [Concomitant]
     Active Substance: FOLIC ACID
  6. TRESIBA [Concomitant]
     Active Substance: INSULIN DEGLUDEC
  7. SODIUM CHLORIDE [Concomitant]
     Active Substance: SODIUM CHLORIDE
  8. BUMETANIDE [Concomitant]
     Active Substance: BUMETANIDE
  9. KETAMINE HYDROCHLORIDE [Concomitant]
     Active Substance: KETAMINE HYDROCHLORIDE
  10. LECITHIN [Concomitant]
     Active Substance: LECITHIN
  11. SILDENAFIL CITRATE [Concomitant]
     Active Substance: SILDENAFIL CITRATE
  12. THIAMINE HYDROCHLORIDE [Concomitant]
     Active Substance: THIAMINE HYDROCHLORIDE
  13. CLONIDINE [Concomitant]
     Active Substance: CLONIDINE
  14. KETOPROFEN [Concomitant]
     Active Substance: KETOPROFEN
  15. LISINOPRIL [Concomitant]
     Active Substance: LISINOPRIL
  16. LIDOCAINE HYDROCHLORIDE [Concomitant]
     Active Substance: LIDOCAINE HYDROCHLORIDE
  17. AMITRIPTYLINE [Concomitant]
     Active Substance: AMITRIPTYLINE
  18. GABAPENTIN [Concomitant]
     Active Substance: GABAPENTIN
  19. POLOXAMER [Concomitant]
     Active Substance: POLOXAMER
  20. METFORMIN [Concomitant]
     Active Substance: METFORMIN HYDROCHLORIDE
  21. MAGNESIUM [Concomitant]
     Active Substance: MAGNESIUM

REACTIONS (8)
  - Acute kidney injury [Unknown]
  - Pain in extremity [Unknown]
  - Device dislocation [Unknown]
  - Therapy non-responder [Unknown]
  - Dyspnoea [Not Recovered/Not Resolved]
  - Fatigue [Not Recovered/Not Resolved]
  - Weight increased [Unknown]
  - Malaise [Unknown]

NARRATIVE: CASE EVENT DATE: 20240801
